FAERS Safety Report 24708336 (Version 1)
Quarter: 2024Q4

REPORT INFORMATION
  Report Type: Report from Study
  Country: CA (occurrence: CA)
  Receive Date: 20241207
  Receipt Date: 20241207
  Transmission Date: 20250114
  Serious: Yes (Other)
  Sender: ABBVIE
  Company Number: CA-ABBVIE-6030661

PATIENT
  Sex: Female

DRUGS (1)
  1. SKYRIZI [Suspect]
     Active Substance: RISANKIZUMAB-RZAA
     Indication: Crohn^s disease
     Route: 058
     Dates: start: 20240618

REACTIONS (8)
  - Abdominal lymphadenopathy [Unknown]
  - Dizziness [Unknown]
  - Asthenia [Unknown]
  - Cardiac disorder [Unknown]
  - Abdominal pain lower [Recovered/Resolved]
  - Asthenia [Unknown]
  - Anxiety [Unknown]
  - Depression [Unknown]

NARRATIVE: CASE EVENT DATE: 20240101
